FAERS Safety Report 5045120-6 (Version None)
Quarter: 2006Q3

REPORT INFORMATION
  Report Type: 
  Country: None (occurrence: None)
  Receive Date: 20060707
  Receipt Date: 20060627
  Transmission Date: 20061208
  Serious: Yes (Life-Threatening)
  Sender: FDA-Public Use
  Company Number: NL-SANOFI-SYNTHELABO-A01200604938

PATIENT
  Sex: Male
  Weight: 78 kg

DRUGS (1)
  1. XATRAL XR [Suspect]
     Indication: MICTURITION DISORDER
     Route: 048
     Dates: start: 20001031

REACTIONS (1)
  - DEMENTIA ALZHEIMER'S TYPE [None]
